FAERS Safety Report 9387956 (Version 1)
Quarter: 2013Q3

REPORT INFORMATION
  Report Type: Spontaneous
  Country: FR (occurrence: FR)
  Receive Date: 20130708
  Receipt Date: 20130708
  Transmission Date: 20140515
  Serious: Yes (Life-Threatening, Hospitalization)
  Sender: FDA-Public Use
  Company Number: FR-CELGENEUS-056-50794-13064231

PATIENT
  Age: 25 Year
  Sex: Female

DRUGS (3)
  1. VIDAZA [Suspect]
     Indication: ACUTE MYELOID LEUKAEMIA
     Dosage: 120 MILLIGRAM
     Route: 041
     Dates: start: 20130222, end: 20130228
  2. EXJADE [Concomitant]
     Indication: ACUTE MYELOID LEUKAEMIA
     Route: 065
  3. VITAMIN D [Concomitant]
     Indication: ACUTE MYELOID LEUKAEMIA
     Route: 065

REACTIONS (3)
  - Bone marrow failure [Not Recovered/Not Resolved]
  - Sepsis [Recovering/Resolving]
  - Pneumonia [Recovering/Resolving]
